FAERS Safety Report 5793778-6 (Version None)
Quarter: 2008Q2

REPORT INFORMATION
  Report Type: 
  Country: None (occurrence: None)
  Receive Date: 20080627
  Receipt Date: 20080620
  Transmission Date: 20081010
  Serious: Yes (Life-Threatening, Disabling, Other)
  Sender: FDA-Public Use
  Company Number: TW-PFIZER INC-2008052773

PATIENT
  Sex: Male

DRUGS (12)
  1. AMLODIPINE [Suspect]
     Indication: HYPERTENSION
     Route: 048
     Dates: start: 20080430, end: 20080608
  2. RIFATER [Suspect]
     Indication: TUBERCULOSIS
     Route: 048
     Dates: start: 20080426, end: 20080521
  3. ISONIAZID [Suspect]
     Indication: TUBERCULOSIS
     Route: 048
     Dates: start: 20080521, end: 20080522
  4. ISONIAZID [Suspect]
     Route: 048
     Dates: start: 20080525, end: 20080605
  5. AMPOLIN [Concomitant]
     Route: 042
     Dates: start: 20080426, end: 20080427
  6. AMPOLIN [Concomitant]
     Route: 042
     Dates: start: 20080501, end: 20080519
  7. BROWN MIXTURE [Concomitant]
     Route: 048
     Dates: start: 20080510, end: 20080510
  8. CALCIUM [Concomitant]
     Route: 042
     Dates: start: 20080427, end: 20080427
  9. DIOVAN HCT [Concomitant]
     Route: 048
     Dates: start: 20080501, end: 20080516
  10. ACETAMINOPHEN [Concomitant]
     Route: 048
     Dates: start: 20080427, end: 20080429
  11. DEXTROSE [Concomitant]
     Route: 042
     Dates: start: 20080426, end: 20080428
  12. DEXTROSE [Concomitant]
     Route: 042
     Dates: start: 20080430, end: 20080430

REACTIONS (3)
  - ACUTE RESPIRATORY DISTRESS SYNDROME [None]
  - RASH [None]
  - RENAL FAILURE [None]
